FAERS Safety Report 12643990 (Version 1)
Quarter: 2016Q3

REPORT INFORMATION
  Report Type: Spontaneous
  Country: FR (occurrence: FR)
  Receive Date: 20160811
  Receipt Date: 20160811
  Transmission Date: 20161109
  Serious: Yes (Hospitalization)
  Sender: FDA-Public Use
  Company Number: FR-PFIZER INC-2016371961

PATIENT
  Age: 65 Year
  Sex: Female

DRUGS (8)
  1. PARACETAMOL [Suspect]
     Active Substance: ACETAMINOPHEN
     Dosage: 1 G, 4X/DAY
     Route: 048
     Dates: start: 20160613
  2. SPASFON /00765801/ [Concomitant]
     Active Substance: PHLOROGLUCINOL\1,3,5-TRIMETHOXYBENZENE
     Dosage: UNK UNK, AS NEEDED
  3. OXALIPLATIN. [Suspect]
     Active Substance: OXALIPLATIN
     Indication: PANCREATIC CARCINOMA METASTATIC
     Dosage: CYCLE 1,FOR 2 DAYS EVERY 15 DAYS
     Route: 042
     Dates: start: 20160613, end: 20160613
  4. DUROGESIC [Suspect]
     Active Substance: FENTANYL
     Dosage: 1 DF (8.4 MG/21 CM2), IN 72H
     Route: 062
     Dates: start: 201605
  5. FLUOROURACILE ACCORD [Suspect]
     Active Substance: FLUOROURACIL
     Indication: PANCREATIC CARCINOMA METASTATIC
     Dosage: CYCLE 1, FOR 2 DAYS EVERY 15 DAYS
     Route: 042
     Dates: start: 20160613, end: 20160613
  6. ABSTRAL [Suspect]
     Active Substance: FENTANYL CITRATE
     Dosage: 100 UG, 4X/DAY
     Route: 060
     Dates: start: 201605
  7. DUROGESIC [Suspect]
     Active Substance: FENTANYL
     Dosage: 1 DF (2.1MG/5.25 CM2), IN 72H
     Route: 062
     Dates: start: 20160613
  8. IRINOTECAN ACCORD [Suspect]
     Active Substance: IRINOTECAN
     Indication: PANCREATIC CARCINOMA METASTATIC
     Dosage: CYCLE 1, FOR 2 DAYS EVERY 15 DAYS
     Route: 042
     Dates: start: 20160613, end: 20160613

REACTIONS (4)
  - Agranulocytosis [Recovered/Resolved]
  - Thrombocytopenia [Recovered/Resolved]
  - Blood phosphorus decreased [Recovered/Resolved]
  - Hypokalaemia [Recovered/Resolved]

NARRATIVE: CASE EVENT DATE: 20160624
